FAERS Safety Report 7976916-6 (Version None)
Quarter: 2011Q4

REPORT INFORMATION
  Report Type: 
  Country: None (occurrence: None)
  Receive Date: 20111213
  Receipt Date: 20111110
  Transmission Date: 20120403
  Serious: No
  Sender: FDA-Public Use
  Company Number: US-AMGEN-USASP2011059017

PATIENT
  Age: 68 Year
  Sex: Female

DRUGS (12)
  1. PULMICORT [Concomitant]
  2. MICARDIS HCT [Concomitant]
  3. MULTIVITAMIN                       /01229101/ [Concomitant]
  4. ESTRADIOL [Concomitant]
  5. LEVOTHYROXINE SODIUM [Concomitant]
  6. ASPIRIN [Concomitant]
  7. COSOPT [Concomitant]
  8. VITAMIN D                          /00318501/ [Concomitant]
  9. ENBREL [Suspect]
     Indication: PSORIASIS
     Dosage: 50 MG, 2 TIMES/WK
     Dates: start: 20110401
  10. CLOBEX                             /00012002/ [Concomitant]
  11. CALCIUM [Concomitant]
  12. TRAVATAN Z [Concomitant]

REACTIONS (5)
  - GASTRIC DISORDER [None]
  - FEELING HOT [None]
  - FLATULENCE [None]
  - NAUSEA [None]
  - DIZZINESS [None]
